FAERS Safety Report 8157438-9 (Version None)
Quarter: 2012Q1

REPORT INFORMATION
  Report Type: 
  Country: None (occurrence: None)
  Receive Date: 20120222
  Receipt Date: 20120210
  Transmission Date: 20120608
  Serious: No
  Sender: FDA-Public Use
  Company Number: US-B.I. PHARMACEUTICALS,INC./RIDGEFIELD-2011-BP-18363BP

PATIENT
  Sex: Male

DRUGS (13)
  1. PRADAXA [Suspect]
     Dosage: 150 MG
     Route: 048
     Dates: start: 20110401, end: 20110721
  2. PRADAXA [Suspect]
     Dosage: 225 MG
     Route: 048
     Dates: start: 20111201
  3. KEFLEX [Concomitant]
     Indication: INFECTION
  4. PRADAXA [Suspect]
     Dosage: 300 MG
     Route: 048
     Dates: start: 20110201, end: 20110401
  5. DIGOXIN [Concomitant]
     Indication: ATRIAL FIBRILLATION
  6. ZETIA [Concomitant]
     Indication: BLOOD CHOLESTEROL INCREASED
  7. NEXIUM [Concomitant]
     Indication: GASTROOESOPHAGEAL REFLUX DISEASE
  8. SYMBICORT [Concomitant]
     Indication: EMPHYSEMA
  9. PRADAXA [Suspect]
     Dosage: 300 MG
     Route: 048
     Dates: start: 20110722, end: 20111201
  10. SINGULAIR [Concomitant]
     Indication: MULTIPLE ALLERGIES
  11. POTASSIUM CHLORIDE [Concomitant]
     Indication: SUPPLEMENTATION THERAPY
  12. PRADAXA [Suspect]
     Indication: ATRIAL FIBRILLATION
     Dosage: 300 MG
     Route: 048
     Dates: start: 20101101, end: 20110206
  13. VERAPAMIL [Concomitant]
     Indication: HYPERTENSION

REACTIONS (14)
  - VERTIGO [None]
  - THINKING ABNORMAL [None]
  - SKIN DISCOLOURATION [None]
  - SKIN INFECTION [None]
  - OEDEMA PERIPHERAL [None]
  - DIZZINESS [None]
  - LACERATION [None]
  - CONTUSION [None]
  - GAIT DISTURBANCE [None]
  - FALL [None]
  - BLEEDING TIME PROLONGED [None]
  - MELAENA [None]
  - DYSPEPSIA [None]
  - CHEST PAIN [None]
